FAERS Safety Report 5330984-9 (Version None)
Quarter: 2007Q2

REPORT INFORMATION
  Report Type: 
  Country: None (occurrence: None)
  Receive Date: 20070522
  Receipt Date: 20070511
  Transmission Date: 20071010
  Serious: Yes (Other)
  Sender: FDA-Public Use
  Company Number: ES-ROCHE-497501

PATIENT
  Age: 56 Year
  Sex: Female

DRUGS (1)
  1. XELODA [Suspect]
     Route: 048
     Dates: start: 20060210, end: 20070320

REACTIONS (3)
  - ENANTHEMA [None]
  - GENITAL RASH [None]
  - HYPERAESTHESIA [None]
